FAERS Safety Report 8119526-2 (Version None)
Quarter: 2011Q4

REPORT INFORMATION
  Report Type: 
  Country: None (occurrence: None)
  Receive Date: 20111227
  Receipt Date: 20111006
  Transmission Date: 20120403
  Serious: No
  Sender: FDA-Public Use
  Company Number: PHEH2011US05907

PATIENT
  Age: 23 Year
  Sex: Female
  Weight: 82.1 kg

DRUGS (1)
  1. GILENYA [Suspect]
     Indication: MULTIPLE SCLEROSIS
     Dosage: 0.5 MG, QD, ORAL
     Route: 048
     Dates: start: 20110928

REACTIONS (6)
  - FATIGUE [None]
  - DIZZINESS POSTURAL [None]
  - DYSPNOEA [None]
  - NAUSEA [None]
  - HEADACHE [None]
  - DIZZINESS [None]
